FAERS Safety Report 7816465-9 (Version None)
Quarter: 2011Q4

REPORT INFORMATION
  Report Type: 
  Country: None (occurrence: None)
  Receive Date: 20111017
  Receipt Date: 20111004
  Transmission Date: 20120403
  Serious: Yes (Other)
  Sender: FDA-Public Use
  Company Number: CA-JNJFOC-20110501432

PATIENT
  Sex: Female
  Weight: 78 kg

DRUGS (4)
  1. VITAMIN TAB [Concomitant]
     Route: 065
  2. REMICADE [Suspect]
     Route: 042
     Dates: start: 20110623
  3. MATERNA [Concomitant]
     Route: 065
  4. REMICADE [Suspect]
     Indication: CROHN'S DISEASE
     Route: 042
     Dates: start: 20040721

REACTIONS (6)
  - DYSPNOEA [None]
  - MATERNAL EXPOSURE DURING PREGNANCY [None]
  - VOMITING [None]
  - COUGH [None]
  - INFUSION RELATED REACTION [None]
  - CAESAREAN SECTION [None]
